FAERS Safety Report 23922630 (Version 1)
Quarter: 2024Q2

REPORT INFORMATION
  Report Type: Spontaneous
  Country: US (occurrence: US)
  Receive Date: 20240531
  Receipt Date: 20240531
  Transmission Date: 20240716
  Serious: Yes (Life-Threatening, Hospitalization)
  Sender: FDA-Public Use
  Company Number: US-MLMSERVICE-20240513-PI058832-00050-1

PATIENT
  Age: 74 Year
  Sex: Female

DRUGS (5)
  1. AMLODIPINE [Suspect]
     Active Substance: AMLODIPINE BESYLATE
     Indication: Blood pressure systolic increased
  2. VALSARTAN [Concomitant]
     Active Substance: VALSARTAN
  3. HYDROCHLOROTHIAZIDE [Concomitant]
     Active Substance: HYDROCHLOROTHIAZIDE
  4. METOPROLOL [Concomitant]
     Active Substance: METOPROLOL
  5. VERAPAMIL [Concomitant]
     Active Substance: VERAPAMIL HYDROCHLORIDE

REACTIONS (5)
  - Overdose [Recovering/Resolving]
  - Hyperglycaemia [Recovering/Resolving]
  - Septic shock [Recovering/Resolving]
  - Vasoplegia syndrome [Recovering/Resolving]
  - Mental status changes [Recovering/Resolving]
